FAERS Safety Report 8912488 (Version 2)
Quarter: 2013Q1

REPORT INFORMATION
  Report Type: Spontaneous
  Country: US (occurrence: US)
  Receive Date: 20121116
  Receipt Date: 20130110
  Transmission Date: 20140127
  Serious: No
  Sender: FDA-Public Use
  Company Number: US-009507513-1211USA006352

PATIENT
  Age: 16 Year
  Sex: Female
  Weight: 58.5 kg

DRUGS (7)
  1. IMPLANON [Suspect]
     Indication: CONTRACEPTION
     Dosage: EVERY 3 YEARS
     Route: 059
     Dates: start: 20121010
  2. PROZAC [Concomitant]
     Dosage: 40 MG, QD
  3. MONTELUKAST [Concomitant]
     Dosage: 10 MG, QD
  4. GUANFACINE HYDROCHLORIDE [Concomitant]
     Dosage: 1.5 MG, QD
  5. ADDERALL XR [Concomitant]
     Dosage: 20 MG, QD
  6. ADVAIR [Concomitant]
  7. PROAIR (ALBUTEROL SULFATE) [Suspect]

REACTIONS (1)
  - Metrorrhagia [Not Recovered/Not Resolved]
